FAERS Safety Report 9554178 (Version 1)
Quarter: 2013Q3

REPORT INFORMATION
  Report Type: Spontaneous
  Country: IT (occurrence: IT)
  Receive Date: 20130925
  Receipt Date: 20130925
  Transmission Date: 20140515
  Serious: Yes (Hospitalization)
  Sender: FDA-Public Use
  Company Number: IT-ASTRAZENECA-2013SE71093

PATIENT
  Age: 27748 Day
  Sex: Male
  Weight: 56 kg

DRUGS (3)
  1. QUETIAPINE [Suspect]
     Indication: CONFUSIONAL STATE
     Route: 048
     Dates: start: 20130501, end: 20130823
  2. MICARDIS [Concomitant]
     Indication: HYPERTENSION
  3. CARDIOASPIRIN (ASA) [Concomitant]
     Indication: THROMBOSIS PROPHYLAXIS

REACTIONS (4)
  - Anaemia macrocytic [Recovered/Resolved]
  - Blood bilirubin increased [Recovered/Resolved]
  - Blood lactate dehydrogenase increased [Recovered/Resolved]
  - Haemolysis [Recovered/Resolved]
